FAERS Safety Report 9053976 (Version 1)
Quarter: 2013Q1

REPORT INFORMATION
  Report Type: Spontaneous
  Country: MX (occurrence: MX)
  Receive Date: 20130208
  Receipt Date: 20130208
  Transmission Date: 20140127
  Serious: Yes (Hospitalization, Other)
  Sender: FDA-Public Use
  Company Number: PHHY2013MX011317

PATIENT
  Age: 64 None
  Sex: Male

DRUGS (12)
  1. GALVUS MET [Suspect]
     Indication: DIABETES MELLITUS
     Dosage: 3 DF (500/50MG), DAILY
     Route: 048
     Dates: start: 20110505, end: 20130129
  2. CO-DIOVAN [Suspect]
     Dosage: UNK UKN, UNK
     Dates: end: 20130129
  3. METFORMIN [Suspect]
  4. GLIMEPIRIDE [Suspect]
  5. GAVINDOL [Suspect]
  6. CONTUMAX [Concomitant]
     Dosage: UNK UKN, Q12H
     Dates: start: 20130129
  7. NORVASC [Concomitant]
     Indication: BLOOD PRESSURE
     Dosage: 1 UNK, DAILY
     Dates: start: 20130129
  8. PANTOZOL [Concomitant]
     Dosage: 20 MG, BEFORE BREAKFAST
     Dates: start: 20130129
  9. TRIMEBUTINE (LIBERTRIM) [Concomitant]
     Dosage: 1 UKN, ALONG WITH FOOD
     Dates: start: 20130129
  10. NOVEFASOL [Concomitant]
     Indication: BLOOD POTASSIUM
     Dosage: 1 UNK, DAILY
     Dates: start: 20130202
  11. TEMPRA [Concomitant]
     Indication: PAIN
     Dosage: UNK UKN, UNK
     Dates: start: 20130202
  12. MICCIL [Concomitant]
     Indication: DIABETES MELLITUS
     Dosage: 1 UKN, IN THE MORNING
     Dates: start: 20130202

REACTIONS (3)
  - Dehydration [Not Recovered/Not Resolved]
  - Diarrhoea [Not Recovered/Not Resolved]
  - Renal disorder [Not Recovered/Not Resolved]
